FAERS Safety Report 4298018-5 (Version None)
Quarter: 2004Q1

REPORT INFORMATION
  Report Type: 
  Country: None (occurrence: None)
  Receive Date: 20040218
  Receipt Date: 20011002
  Transmission Date: 20041129
  Serious: Yes (Other)
  Sender: FDA-Public Use
  Company Number: US-BRISTOL-MYERS SQUIBB COMPANY-11057932

PATIENT
  Age: 34 Year
  Sex: Male

DRUGS (4)
  1. STADOL [Suspect]
     Indication: PANCREATITIS CHRONIC
     Route: 045
  2. STADOL [Suspect]
     Indication: ABDOMINAL PAIN
     Route: 045
  3. STADOL [Suspect]
     Indication: CHEST WALL PAIN
     Route: 045
  4. NEURONTIN [Concomitant]

REACTIONS (1)
  - DEPENDENCE [None]
